FAERS Safety Report 17433428 (Version 1)
Quarter: 2020Q1

REPORT INFORMATION
  Report Type: Spontaneous
  Country: US (occurrence: US)
  Receive Date: 20200219
  Receipt Date: 20200219
  Transmission Date: 20200409
  Serious: Yes (Hospitalization, Other)
  Sender: FDA-Public Use
  Company Number: US-BRISTOL-MYERS SQUIBB COMPANY-BMS-2020-011802

PATIENT
  Sex: Male

DRUGS (4)
  1. RADIOPAQUE [BARIUM SULFATE] [Suspect]
     Active Substance: BARIUM SULFATE
     Indication: PRODUCT USED FOR UNKNOWN INDICATION
     Route: 065
  2. LIDOCAINE. [Suspect]
     Active Substance: LIDOCAINE
     Indication: LOCAL ANAESTHESIA
     Dosage: 1 PERCENT
     Route: 065
  3. KENALOG [Suspect]
     Active Substance: TRIAMCINOLONE ACETONIDE
     Indication: PRODUCT USED FOR UNKNOWN INDICATION
     Dosage: 80 MILLIGRAM
     Route: 008
  4. BUPIVACAINE. [Suspect]
     Active Substance: BUPIVACAINE
     Indication: PRODUCT USED FOR UNKNOWN INDICATION
     Dosage: 0.125 PERCENT
     Route: 065

REACTIONS (12)
  - Bacteraemia [Unknown]
  - Acute left ventricular failure [Unknown]
  - Chronic kidney disease [Unknown]
  - Pain [Unknown]
  - Hypertension [Unknown]
  - Spinal cord abscess [Unknown]
  - Type 1 diabetes mellitus [Unknown]
  - Sleep apnoea syndrome [Unknown]
  - Obesity [Unknown]
  - Staphylococcus test positive [Unknown]
  - Encephalopathy [Recovered/Resolved]
  - Intentional product use issue [Unknown]
